FAERS Safety Report 7073807-2 (Version None)
Quarter: 2010Q4

REPORT INFORMATION
  Report Type: 
  Country: None (occurrence: None)
  Receive Date: 20101029
  Receipt Date: 20100817
  Transmission Date: 20110411
  Serious: No
  Sender: FDA-Public Use
  Company Number: A0876369A

PATIENT
  Sex: Female

DRUGS (5)
  1. ADVAIR DISKUS 100/50 [Suspect]
     Indication: CHRONIC OBSTRUCTIVE PULMONARY DISEASE
     Dosage: 1BLS TWICE PER DAY
     Route: 055
  2. NEXIUM [Concomitant]
  3. UNKNOWN MEDICATION [Concomitant]
  4. METAMUCIL-2 [Concomitant]
  5. VITAMINS [Concomitant]

REACTIONS (2)
  - COUGH [None]
  - OROPHARYNGEAL BLISTERING [None]
